FAERS Safety Report 12497103 (Version 1)
Quarter: 2016Q2

REPORT INFORMATION
  Report Type: Report from Study
  Country: US (occurrence: US)
  Receive Date: 20160624
  Receipt Date: 20160624
  Transmission Date: 20160815
  Serious: Yes (Hospitalization)
  Sender: FDA-Public Use
  Company Number: PHHY2016US086129

PATIENT
  Age: 63 Year
  Sex: Female
  Weight: 76.65 kg

DRUGS (1)
  1. GILENYA [Suspect]
     Active Substance: FINGOLIMOD HYDROCHLORIDE
     Indication: MULTIPLE SCLEROSIS
     Dosage: UNK, QD
     Route: 048
     Dates: start: 201507

REACTIONS (6)
  - Cyst [Recovering/Resolving]
  - Headache [Recovering/Resolving]
  - Polyp [Recovering/Resolving]
  - Stress [Recovering/Resolving]
  - Hypertension [Recovering/Resolving]
  - Abdominal pain upper [Recovering/Resolving]

NARRATIVE: CASE EVENT DATE: 20160214
